FAERS Safety Report 8615537-9 (Version None)
Quarter: 2012Q3

REPORT INFORMATION
  Report Type: 
  Country: None (occurrence: None)
  Receive Date: 20120823
  Receipt Date: 20120814
  Transmission Date: 20120928
  Serious: No
  Sender: FDA-Public Use
  Company Number: US-009507513-1208USA007023

PATIENT

DRUGS (1)
  1. SAPHRIS [Suspect]
     Dosage: 5 MG, QD
     Route: 060
     Dates: start: 20120723

REACTIONS (2)
  - SWELLING FACE [None]
  - DYSPNOEA [None]
